FAERS Safety Report 6789767-5 (Version None)
Quarter: 2010Q2

REPORT INFORMATION
  Report Type: 
  Country: None (occurrence: None)
  Receive Date: 20100624
  Receipt Date: 20100616
  Transmission Date: 20101027
  Serious: Yes (Other)
  Sender: FDA-Public Use
  Company Number: BR-PFIZER INC-2010062695

PATIENT
  Age: 71 Year
  Sex: Female
  Weight: 109 kg

DRUGS (4)
  1. LIPITOR [Suspect]
     Indication: BLOOD CHOLESTEROL ABNORMAL
     Dosage: 10 MG, UNK
     Route: 048
     Dates: start: 20100512, end: 20100501
  2. ASPIRIN [Concomitant]
     Indication: ANTICOAGULANT THERAPY
     Dosage: UNK
  3. METFORMIN HYDROCHLORIDE [Concomitant]
     Indication: DIABETES MELLITUS
     Dosage: UNK
  4. LOSARTAN [Concomitant]
     Dosage: UNK

REACTIONS (12)
  - EYE SWELLING [None]
  - FATIGUE [None]
  - FIBROMYALGIA [None]
  - INSOMNIA [None]
  - MALAISE [None]
  - MYALGIA [None]
  - OSTEOPOROSIS [None]
  - PARAESTHESIA [None]
  - PRURITUS [None]
  - SWELLING [None]
  - THROAT IRRITATION [None]
  - TINNITUS [None]
